FAERS Safety Report 13768388 (Version 1)
Quarter: 2017Q3

REPORT INFORMATION
  Report Type: Spontaneous
  Country: US (occurrence: US)
  Receive Date: 20170719
  Receipt Date: 20170719
  Transmission Date: 20171127
  Serious: Yes (Other)
  Sender: FDA-Public Use
  Company Number: None

PATIENT
  Age: 30 Year
  Sex: Male
  Weight: 84 kg

DRUGS (7)
  1. OMEGA3 [Concomitant]
  2. PROTEIN POWDER [Concomitant]
  3. LEXAPRO [Suspect]
     Active Substance: ESCITALOPRAM OXALATE
     Indication: STRESS
     Dosage: ?          OTHER STRENGTH:MG;QUANTITY:1 TABLET(S);?
     Route: 048
     Dates: start: 20110505, end: 20170614
  4. CREATINE [Concomitant]
     Active Substance: CREATINE
  5. LEXAPRO [Suspect]
     Active Substance: ESCITALOPRAM OXALATE
     Indication: ANXIETY
     Dosage: ?          OTHER STRENGTH:MG;QUANTITY:1 TABLET(S);?
     Route: 048
     Dates: start: 20110505, end: 20170614
  6. LEXAPRO [Suspect]
     Active Substance: ESCITALOPRAM OXALATE
     Indication: PANIC ATTACK
     Dosage: ?          OTHER STRENGTH:MG;QUANTITY:1 TABLET(S);?
     Route: 048
     Dates: start: 20110505, end: 20170614
  7. AMINOACIDS [Concomitant]

REACTIONS (6)
  - Unevaluable event [None]
  - Dizziness [None]
  - Fear [None]
  - Eating disorder [None]
  - Withdrawal syndrome [None]
  - Confusional state [None]

NARRATIVE: CASE EVENT DATE: 20170706
